FAERS Safety Report 8984619 (Version 1)
Quarter: 2012Q4

REPORT INFORMATION
  Report Type: Report from Study
  Country: CA (occurrence: CA)
  Receive Date: 20121226
  Receipt Date: 20121226
  Transmission Date: 20130627
  Serious: Yes (Other)
  Sender: FDA-Public Use
  Company Number: CA-JNJFOC-20121209504

PATIENT
  Age: 16 Year
  Sex: Male
  Weight: 88 kg

DRUGS (3)
  1. REMICADE [Suspect]
     Indication: COLITIS ULCERATIVE
     Dosage: 0,2,6, then 5 mg/kg once every 8 weeks
     Route: 042
     Dates: start: 20121102
  2. IMURAN [Concomitant]
     Route: 065
  3. SALOFALK [Concomitant]
     Dosage: 8 pills
     Route: 065

REACTIONS (1)
  - Clostridium difficile infection [Not Recovered/Not Resolved]
